FAERS Safety Report 5009959-5 (Version None)
Quarter: 2006Q2

REPORT INFORMATION
  Report Type: 
  Country: None (occurrence: None)
  Receive Date: 20060524
  Receipt Date: 19980625
  Transmission Date: 20061013
  Serious: Yes (Hospitalization, Other)
  Sender: FDA-Public Use
  Company Number: DE-BRISTOL-MYERS SQUIBB COMPANY-13382064

PATIENT
  Age: 76 Year
  Sex: Male
  Weight: 81 kg

DRUGS (2)
  1. TAXOL [Suspect]
     Indication: BLADDER CANCER
     Route: 042
     Dates: start: 19970915, end: 19971121
  2. CARBOPLATIN [Suspect]
     Indication: BLADDER CANCER
     Dates: start: 19970915, end: 19971121

REACTIONS (16)
  - ARRHYTHMIA [None]
  - ATRIAL FIBRILLATION [None]
  - CARDIOACTIVE DRUG LEVEL DECREASED [None]
  - DYSPEPSIA [None]
  - DYSPNOEA [None]
  - DYSPNOEA EXERTIONAL [None]
  - GENERAL PHYSICAL HEALTH DETERIORATION [None]
  - HAEMATURIA [None]
  - HYPERGLYCAEMIA [None]
  - HYPERTHYROIDISM [None]
  - MICTURITION DISORDER [None]
  - MYOCARDIAL ISCHAEMIA [None]
  - ORCHITIS [None]
  - PARAESTHESIA [None]
  - PULMONARY HYPERTENSION [None]
  - URINARY RETENTION [None]
